FAERS Safety Report 8048277-8 (Version None)
Quarter: 2011Q4

REPORT INFORMATION
  Report Type: 
  Country: None (occurrence: None)
  Receive Date: 20111209
  Receipt Date: 20110926
  Transmission Date: 20120403
  Serious: No
  Sender: FDA-Public Use
  Company Number: 2011SP045555

PATIENT
  Age: 48 Year
  Sex: Male

DRUGS (2)
  1. VICTRELIS [Suspect]
     Indication: HEPATITIS C
     Dosage: 4 DF; TID; PO
     Route: 048
     Dates: start: 20110912
  2. GLIPIZIDE [Concomitant]

REACTIONS (3)
  - DRY MOUTH [None]
  - DECREASED APPETITE [None]
  - DYSGEUSIA [None]
